FAERS Safety Report 16313735 (Version 7)
Quarter: 2021Q1

REPORT INFORMATION
  Report Type: Spontaneous
  Country: US (occurrence: US)
  Receive Date: 20190515
  Receipt Date: 20210108
  Transmission Date: 20210419
  Serious: No
  Sender: FDA-Public Use
  Company Number: US-PFIZER INC-2019203416

PATIENT
  Age: 79 Year
  Sex: Female
  Weight: 64.41 kg

DRUGS (3)
  1. CELEBREX [Suspect]
     Active Substance: CELECOXIB
     Indication: OSTEOPOROSIS
     Dosage: 200 MG, 2X/DAY (TAKE 1 CAPSULE(S) BY ORAL ROUTE, 2 TIMES PER DAY, FOR 90 DAYS)
     Route: 048
  2. AZITHROMYCIN ANHYDROUS. [Concomitant]
     Active Substance: AZITHROMYCIN ANHYDROUS
     Indication: PERIPHERAL VASCULAR DISORDER
     Dosage: 500 MG
  3. CELEBREX [Suspect]
     Active Substance: CELECOXIB
     Indication: HYPERLIPIDAEMIA

REACTIONS (2)
  - Off label use [Unknown]
  - Drug ineffective for unapproved indication [Unknown]
